FAERS Safety Report 7475237-8 (Version None)
Quarter: 2011Q1

REPORT INFORMATION
  Report Type: 
  Country: None (occurrence: None)
  Receive Date: 20110302
  Receipt Date: 20100804
  Transmission Date: 20110831
  Serious: Yes (Other)
  Sender: FDA-Public Use
  Company Number: 163-21880-10062551

PATIENT
  Age: 58 Year
  Sex: Male

DRUGS (12)
  1. HYDROCODONE APAP (PROCET /USA/) [Concomitant]
  2. ASPIRIN [Concomitant]
  3. REVLIMID [Suspect]
     Indication: MULTIPLE MYELOMA
     Dosage: 10 MG, DAILY HOLD UNTIL 23/6/2010, PO; 5 MG, 1 IN 1 D, PO
     Route: 048
     Dates: start: 20100323, end: 20100608
  4. REVLIMID [Suspect]
     Indication: MULTIPLE MYELOMA
     Dosage: 10 MG, DAILY HOLD UNTIL 23/6/2010, PO; 5 MG, 1 IN 1 D, PO
     Route: 048
     Dates: start: 20100623
  5. AREDIA [Concomitant]
  6. CALCIUM (CALCIUM) [Concomitant]
  7. MULTIVITAMIN [Concomitant]
  8. TESTOSTERONE [Concomitant]
  9. VITAMIN D [Concomitant]
  10. ATENOLOL [Concomitant]
  11. BACTRIM DS [Concomitant]
  12. VITAMIN D [Concomitant]

REACTIONS (7)
  - WHITE BLOOD CELL COUNT DECREASED [None]
  - PANCYTOPENIA [None]
  - HAEMOGLOBIN DECREASED [None]
  - PRURITUS [None]
  - FATIGUE [None]
  - NOCTURIA [None]
  - MEAN CELL VOLUME INCREASED [None]
